FAERS Safety Report 7637769-9 (Version None)
Quarter: 2011Q3

REPORT INFORMATION
  Report Type: 
  Country: None (occurrence: None)
  Receive Date: 20110727
  Receipt Date: 20110713
  Transmission Date: 20111222
  Serious: Yes (Hospitalization, Other)
  Sender: FDA-Public Use
  Company Number: US-CELGENEUS-163-21880-11071686

PATIENT
  Sex: Male
  Weight: 104.42 kg

DRUGS (7)
  1. REVLIMID [Suspect]
     Indication: LIGHT CHAIN DISEASE
     Dosage: 10 MILLIGRAM
     Route: 048
     Dates: start: 20071010, end: 20110621
  2. COREG [Concomitant]
     Route: 065
  3. LIPITOR [Concomitant]
     Route: 065
  4. DEXAMETHASONE [Concomitant]
     Route: 065
  5. RENVELA [Concomitant]
     Route: 065
  6. ASPIRIN [Concomitant]
     Dosage: 81 MILLIGRAM
     Route: 065
  7. WARFARIN [Concomitant]
     Route: 065

REACTIONS (2)
  - INTERVERTEBRAL DISC PROTRUSION [None]
  - HALLUCINATION [None]
